FAERS Safety Report 25097460 (Version 1)
Quarter: 2025Q1

REPORT INFORMATION
  Report Type: Spontaneous
  Country: JP (occurrence: JP)
  Receive Date: 20250320
  Receipt Date: 20250320
  Transmission Date: 20250409
  Serious: Yes (Hospitalization, Other)
  Sender: EXELIXIS
  Company Number: JP-BRISTOL-MYERS SQUIBB COMPANY-2023-074087

PATIENT
  Age: 56 Year
  Sex: Male
  Weight: 82.1 kg

DRUGS (7)
  1. CABOMETYX [Suspect]
     Active Substance: CABOZANTINIB S-MALATE
     Indication: Metastatic renal cell carcinoma
     Route: 048
     Dates: start: 20221213, end: 20230331
  2. OPDIVO [Suspect]
     Active Substance: NIVOLUMAB
     Indication: Metastatic renal cell carcinoma
     Route: 041
     Dates: start: 20221213, end: 20230228
  3. CALCIUM CARBONATE\CHOLECALCIFEROL\MAGNESIUM CARBONATE [Concomitant]
     Active Substance: CALCIUM CARBONATE\CHOLECALCIFEROL\MAGNESIUM CARBONATE
     Route: 048
     Dates: start: 20221129
  4. DENOSUMAB [Concomitant]
     Active Substance: DENOSUMAB
     Route: 058
     Dates: start: 20221129
  5. LEVOTHYROXINE SODIUM [Concomitant]
     Active Substance: LEVOTHYROXINE SODIUM
     Route: 048
     Dates: start: 20230207
  6. SALEX [Concomitant]
     Active Substance: SALICYLIC ACID
     Route: 061
     Dates: start: 20230314
  7. UREA [Concomitant]
     Active Substance: UREA
     Route: 061
     Dates: start: 20230314

REACTIONS (3)
  - Hepatitis [Recovering/Resolving]
  - Pancreatitis [Recovering/Resolving]
  - Rash [Unknown]

NARRATIVE: CASE EVENT DATE: 20230406
